FAERS Safety Report 24409476 (Version 1)
Quarter: 2024Q4

REPORT INFORMATION
  Report Type: Spontaneous
  Country: US (occurrence: US)
  Receive Date: 20241008
  Receipt Date: 20241008
  Transmission Date: 20250115
  Serious: No
  Sender: MERCK
  Company Number: US-009507513-2409USA010348

PATIENT
  Age: 78 Year
  Sex: Male

DRUGS (3)
  1. INVANZ [Suspect]
     Active Substance: ERTAPENEM SODIUM
     Indication: Actinomycosis
     Dosage: 1 GRAM, EVERY 24 H
     Route: 042
  2. AMOXICILLIN [Concomitant]
     Active Substance: AMOXICILLIN
     Indication: Actinomycosis
     Dosage: 500 MILLIGRAM, EVERY 8H
     Route: 048
  3. AMOXICILLIN\CLAVULANATE POTASSIUM [Concomitant]
     Active Substance: AMOXICILLIN\CLAVULANATE POTASSIUM
     Indication: Actinomycosis
     Dosage: 875/125 MG, EVERY 8 H
     Route: 048

REACTIONS (1)
  - Product use in unapproved indication [Unknown]
